FAERS Safety Report 25375167 (Version 2)
Quarter: 2025Q2

REPORT INFORMATION
  Report Type: Spontaneous
  Country: FR (occurrence: FR)
  Receive Date: 20250529
  Receipt Date: 20250603
  Transmission Date: 20250716
  Serious: Yes (Death)
  Sender: ORGANON
  Company Number: None

PATIENT
  Age: 45 Year
  Sex: Male
  Weight: 94 kg

DRUGS (14)
  1. FINASTERIDE [Suspect]
     Active Substance: FINASTERIDE
     Indication: Urinary tract disorder
     Dosage: 5 MILLIGRAM, QD
     Route: 048
  2. CYAMEMAZINE [Suspect]
     Active Substance: CYAMEMAZINE
     Indication: Mental disorder
     Dosage: 225 MILLIGRAM, QD
     Route: 048
     Dates: start: 20250221
  3. TAMSULOSIN [Suspect]
     Active Substance: TAMSULOSIN
     Indication: Urinary tract disorder
     Dosage: 0.4 MILLIGRAM, QD
     Route: 048
  4. VALIUM [Suspect]
     Active Substance: DIAZEPAM
     Indication: Mental disorder
     Dosage: 45 GTT DROPS, QD
     Route: 048
  5. LORMETAZEPAM [Suspect]
     Active Substance: LORMETAZEPAM
     Indication: Insomnia
     Dosage: 1 MILLIGRAM, QD
     Route: 048
  6. POLYETHYLENE GLYCOL 4000 [Suspect]
     Active Substance: POLYETHYLENE GLYCOL 4000
     Indication: Constipation
     Dosage: 40 GRAM, QD
     Route: 048
  7. PAROXETINE [Suspect]
     Active Substance: PAROXETINE
     Indication: Depression
     Dosage: 10 MILLIGRAM, QD
     Route: 048
  8. MESTINON [Suspect]
     Active Substance: PYRIDOSTIGMINE BROMIDE
     Indication: Intestinal atony
     Dosage: 120 MILLIGRAM, QD
     Route: 048
  9. TRIMEBUTINE [Suspect]
     Active Substance: TRIMEBUTINE
     Indication: Gastrointestinal pain
     Dosage: 300 MILLIGRAM, QD
     Route: 048
  10. ZUCLOPENTHIXOL ACETATE [Suspect]
     Active Substance: ZUCLOPENTHIXOL ACETATE
     Indication: Mental disorder
     Dosage: 4 DOSAGE FORM, QOW, (SOLUTION INJECTABLE I.M.)
     Route: 030
  11. MIANSERIN HYDROCHLORIDE [Suspect]
     Active Substance: MIANSERIN HYDROCHLORIDE
     Indication: Depression
     Dosage: 30 MILLIGRAM, QD
     Route: 048
  12. PANTOPRAZOLE [Suspect]
     Active Substance: PANTOPRAZOLE
     Indication: Gastrointestinal disorder
     Dosage: 40 MILLIGRAM, QD
     Route: 048
  13. ACETAMINOPHEN [Suspect]
     Active Substance: ACETAMINOPHEN
     Indication: Pain
     Route: 048
  14. MINERAL OIL [Suspect]
     Active Substance: MINERAL OIL
     Indication: Constipation
     Dosage: 2 DOSAGE FORM, QD, (ORAL GEL IN SINGLE-DOSE CONTAINER)
     Route: 048

REACTIONS (1)
  - Cardio-respiratory arrest [Fatal]

NARRATIVE: CASE EVENT DATE: 20250505
